FAERS Safety Report 14820071 (Version 1)
Quarter: 2018Q2

REPORT INFORMATION
  Report Type: Spontaneous
  Country: US (occurrence: US)
  Receive Date: 20180403
  Receipt Date: 20180403
  Transmission Date: 20180711
  Serious: Yes (Hospitalization, Disabling)
  Sender: FDA-Public Use
  Company Number: None

PATIENT
  Age: 34 Year
  Sex: Female
  Weight: 171 kg

DRUGS (7)
  1. INVANZ [Suspect]
     Active Substance: ERTAPENEM SODIUM
     Indication: OSTEOMYELITIS
     Route: 042
     Dates: start: 20170830, end: 20170831
  2. CELEXA [Concomitant]
     Active Substance: CITALOPRAM HYDROBROMIDE
  3. KLONOPIN [Concomitant]
     Active Substance: CLONAZEPAM
  4. ZOFRAN [Concomitant]
     Active Substance: ONDANSETRON HYDROCHLORIDE
  5. B6 [Concomitant]
     Active Substance: PYRIDOXINE HYDROCHLORIDE
  6. ORTHO NOVUM [Concomitant]
     Active Substance: MESTRANOL\NORETHINDRONE
  7. DEXILANT [Concomitant]
     Active Substance: DEXLANSOPRAZOLE

REACTIONS (15)
  - Fear [None]
  - Hypophagia [None]
  - Seizure [None]
  - Catatonia [None]
  - Speech disorder [None]
  - Dysstasia [None]
  - Muscle spasms [None]
  - Muscle rigidity [None]
  - Dyskinesia [None]
  - Fluid intake reduced [None]
  - Intentional self-injury [None]
  - Agitation [None]
  - Pain [None]
  - Fall [None]
  - Hyperaesthesia [None]

NARRATIVE: CASE EVENT DATE: 20170831
